FAERS Safety Report 6398881-8 (Version None)
Quarter: 2009Q4

REPORT INFORMATION
  Report Type: 
  Country: None (occurrence: None)
  Receive Date: 20091007
  Receipt Date: 20090929
  Transmission Date: 20100525
  Serious: Yes (Other)
  Sender: FDA-Public Use
  Company Number: 392835

PATIENT
  Age: 71 Year
  Sex: Female

DRUGS (2)
  1. HEPARIN SODIUM [Suspect]
     Indication: ANTICOAGULANT THERAPY
     Dosage: INTRAVENOUS
     Route: 042
  2. ANGIOMAX [Concomitant]

REACTIONS (5)
  - ATRIAL THROMBOSIS [None]
  - CARDIOGENIC SHOCK [None]
  - HEPARIN-INDUCED THROMBOCYTOPENIA [None]
  - RENAL FAILURE [None]
  - VENTRICULAR FIBRILLATION [None]
